FAERS Safety Report 6176077-2 (Version None)
Quarter: 2009Q2

REPORT INFORMATION
  Report Type: 
  Country: None (occurrence: None)
  Receive Date: 20090501
  Receipt Date: 20090423
  Transmission Date: 20091009
  Serious: Yes (Other)
  Sender: FDA-Public Use
  Company Number: US-B.I. PHARMACEUTICALS,INC./RIDGEFIELD-2009-BP-05145BP

PATIENT
  Sex: Female

DRUGS (2)
  1. ZANTAC 150 [Suspect]
     Indication: HYPERCHLORHYDRIA
     Dosage: 150MG
     Route: 048
     Dates: start: 20090423, end: 20090423
  2. ALESSE [Concomitant]
     Indication: CONTRACEPTION
     Route: 048
     Dates: start: 20090415

REACTIONS (5)
  - CHEST DISCOMFORT [None]
  - EYE PRURITUS [None]
  - OCULAR HYPERAEMIA [None]
  - THROAT IRRITATION [None]
  - THROAT TIGHTNESS [None]
